FAERS Safety Report 25552719 (Version 2)
Quarter: 2025Q3

REPORT INFORMATION
  Report Type: Spontaneous
  Country: JP (occurrence: JP)
  Receive Date: 20250715
  Receipt Date: 20250812
  Transmission Date: 20251021
  Serious: Yes (Hospitalization)
  Sender: ROCHE
  Company Number: JP-CHUGAI-2025017880

PATIENT
  Age: 82 Year
  Sex: Female

DRUGS (1)
  1. VABYSMO [Suspect]
     Active Substance: FARICIMAB-SVOA
     Indication: Diabetic retinal oedema
     Dosage: 0.05 MILLILITER, ONCE/4WEEKS, BOTH EYES ?STRENGTH 120 MG/ML
     Route: 031
     Dates: start: 20250128, end: 20250401

REACTIONS (3)
  - Necrotising retinitis [Recovering/Resolving]
  - Retinal detachment [Recovered/Resolved]
  - Retinal occlusive vasculitis [Recovering/Resolving]

NARRATIVE: CASE EVENT DATE: 20250422
